FAERS Safety Report 5888051-1 (Version None)
Quarter: 2008Q3

REPORT INFORMATION
  Report Type: 
  Country: None (occurrence: None)
  Receive Date: 20080917
  Receipt Date: 20080917
  Transmission Date: 20090109
  Serious: No
  Sender: FDA-Public Use
  Company Number: None

PATIENT
  Age: 61 Year
  Sex: Male
  Weight: 68.0396 kg

DRUGS (1)
  1. LEVAQUIN [Suspect]
     Indication: BIOPSY PROSTATE
     Dosage: 500MG 1/DAY PO
     Route: 048
     Dates: start: 20080911, end: 20080913

REACTIONS (11)
  - ARTHRALGIA [None]
  - BURNING SENSATION [None]
  - DYSSTASIA [None]
  - FEELING ABNORMAL [None]
  - GAIT DISTURBANCE [None]
  - MOVEMENT DISORDER [None]
  - MUSCLE DISORDER [None]
  - MUSCULOSKELETAL STIFFNESS [None]
  - MYALGIA [None]
  - NERVOUS SYSTEM DISORDER [None]
  - PAIN IN EXTREMITY [None]
